FAERS Safety Report 11770606 (Version 1)
Quarter: 2015Q4

REPORT INFORMATION
  Report Type: Spontaneous
  Country: US (occurrence: None)
  Receive Date: 20151123
  Receipt Date: 20151123
  Transmission Date: 20160304
  Serious: Yes (Other)
  Sender: FDA-Public Use
  Company Number: US-MDT-ADR-2015-02216

PATIENT
  Age: 40 Year
  Sex: Female

DRUGS (1)
  1. BACLOFEN INTRATHECAL  500 MCG/ML [Suspect]
     Active Substance: BACLOFEN
     Indication: MUSCLE SPASTICITY
     Dosage: 120.07 MCG/DAY

REACTIONS (2)
  - Medical device site swelling [None]
  - Cerebrospinal fluid leakage [None]
